FAERS Safety Report 7707658-X (Version None)
Quarter: 2011Q3

REPORT INFORMATION
  Report Type: 
  Country: None (occurrence: None)
  Receive Date: 20110824
  Receipt Date: 20110810
  Transmission Date: 20111222
  Serious: Yes (Hospitalization)
  Sender: FDA-Public Use
  Company Number: US-UCBSA-029112

PATIENT
  Sex: Male
  Weight: 47.2 kg

DRUGS (10)
  1. VITAMIN B-12 [Concomitant]
     Indication: VITAMIN SUPPLEMENTATION
     Route: 030
     Dates: start: 20020927
  2. MV [Concomitant]
     Indication: VITAMIN SUPPLEMENTATION
     Dosage: 1
     Route: 048
     Dates: start: 19940101
  3. CLARITIN-D 24 HOUR [Concomitant]
     Indication: ANTIALLERGIC THERAPY
     Dosage: 10 MG, 120 MG
     Route: 048
     Dates: start: 20100707, end: 20100822
  4. CERTOLIZUMAB PEGOL [Suspect]
     Indication: CROHN'S DISEASE
     Route: 058
     Dates: start: 20070105, end: 20110119
  5. ACTONEL [Concomitant]
     Indication: OSTEOPENIA
     Route: 048
     Dates: start: 20050612
  6. CLARITIN-D 24 HOUR [Concomitant]
     Indication: SEASONAL ALLERGY
     Dosage: 10 MG, 120 MG
     Route: 048
     Dates: start: 20100707, end: 20100822
  7. CLARITIN-D 24 HOUR [Concomitant]
     Dosage: 10 MG, 120 MG
     Route: 048
     Dates: start: 20100928
  8. NICODERM [Concomitant]
     Indication: TOBACCO USER
     Route: 062
     Dates: start: 20101011
  9. CALCIUM +D [Concomitant]
     Indication: OSTEOPENIA
     Route: 048
     Dates: start: 20041101
  10. CLARITIN-D 24 HOUR [Concomitant]
     Dosage: 10 MG, 120 MG
     Route: 048
     Dates: start: 20100928

REACTIONS (3)
  - RENAL FAILURE ACUTE [None]
  - ANAEMIA [None]
  - PNEUMONIA BACTERIAL [None]
